FAERS Safety Report 10327436 (Version 1)
Quarter: 2014Q3

REPORT INFORMATION
  Report Type: Spontaneous
  Country: US (occurrence: US)
  Receive Date: 20140721
  Receipt Date: 20140721
  Transmission Date: 20150326
  Serious: Yes (Other)
  Sender: FDA-Public Use
  Company Number: US-ROCHE-1435979

PATIENT
  Sex: Male

DRUGS (7)
  1. DILANTIN [Concomitant]
     Active Substance: PHENYTOIN
  2. ZONEGRAN [Concomitant]
     Active Substance: ZONISAMIDE
  3. LYRICA [Concomitant]
     Active Substance: PREGABALIN
  4. KLONOPIN [Suspect]
     Active Substance: CLONAZEPAM
     Indication: PRODUCT USED FOR UNKNOWN INDICATION
     Route: 065
  5. KEPPRA [Concomitant]
     Active Substance: LEVETIRACETAM
  6. LAMICTAL [Concomitant]
     Active Substance: LAMOTRIGINE
  7. VIMPAT [Concomitant]
     Active Substance: LACOSAMIDE

REACTIONS (5)
  - Visual impairment [Unknown]
  - Brain operation [Unknown]
  - Decreased appetite [Unknown]
  - Vagal nerve stimulator implantation [Unknown]
  - Abnormal behaviour [Unknown]
